FAERS Safety Report 15869158 (Version 1)
Quarter: 2019Q1

REPORT INFORMATION
  Report Type: Spontaneous
  Country: FR (occurrence: FR)
  Receive Date: 20190125
  Receipt Date: 20190125
  Transmission Date: 20190417
  Serious: Yes (Other)
  Sender: FDA-Public Use
  Company Number: FR-009507513-1901FRA006264

PATIENT
  Age: 44 Year
  Sex: Male
  Weight: 67 kg

DRUGS (12)
  1. TRUVADA [Concomitant]
     Active Substance: EMTRICITABINE\TENOFOVIR DISOPROXIL FUMARATE
  2. LANZOR [Suspect]
     Active Substance: LANSOPRAZOLE
     Indication: GASTRITIS PROPHYLAXIS
     Dosage: 1 DOSAGE FORM,QD
     Route: 048
     Dates: end: 20181018
  3. PIRILENE [Concomitant]
     Active Substance: PYRAZINAMIDE
  4. BACTRIM [Suspect]
     Active Substance: SULFAMETHOXAZOLE\TRIMETHOPRIM
     Indication: ANTIFUNGAL PROPHYLAXIS
     Dosage: 800 MILLIGRAM, QOD
     Route: 048
     Dates: start: 20180721, end: 20181018
  5. RIFADIN [Concomitant]
     Active Substance: RIFAMPIN
  6. OXYNORM [Concomitant]
     Active Substance: OXYCODONE HYDROCHLORIDE
  7. CANCIDAS [Suspect]
     Active Substance: CASPOFUNGIN ACETATE
     Indication: CANDIDA INFECTION
     Route: 042
     Dates: start: 20181007, end: 20181018
  8. RANITIDINE HYDROCHLORIDE. [Concomitant]
     Active Substance: RANITIDINE HYDROCHLORIDE
  9. OXYCONTIN [Concomitant]
     Active Substance: OXYCODONE HYDROCHLORIDE
  10. GAVISCON (SODIUM ALGINATE (+) SODIUM BICARBONATE) [Concomitant]
     Active Substance: SODIUM ALGINATE\SODIUM BICARBONATE
  11. RIMIFON [Concomitant]
     Active Substance: ISONIAZID
  12. TIVICAY [Concomitant]
     Active Substance: DOLUTEGRAVIR SODIUM

REACTIONS (1)
  - Pancytopenia [Recovered/Resolved]

NARRATIVE: CASE EVENT DATE: 20181016
